FAERS Safety Report 15292958 (Version 1)
Quarter: 2018Q3

REPORT INFORMATION
  Report Type: Spontaneous
  Country: US (occurrence: US)
  Receive Date: 20180806
  Receipt Date: 20180806
  Transmission Date: 20181010
  Serious: Yes (Other)
  Sender: FDA-Public Use
  Company Number: None

PATIENT
  Age: 57 Year
  Sex: Female
  Weight: 66.15 kg

DRUGS (14)
  1. VALSARTAN. [Concomitant]
     Active Substance: VALSARTAN
  2. ASPIRIN 81 [Concomitant]
     Active Substance: ASPIRIN
  3. ALIVE BONE FORMULA [Concomitant]
  4. K2 PLUS D3 [Concomitant]
  5. COQ10 [Concomitant]
     Active Substance: UBIDECARENONE
  6. MAGNESIUM TAURATE [Concomitant]
  7. SYNTHROID [Concomitant]
     Active Substance: LEVOTHYROXINE SODIUM
  8. CYTOMEL [Concomitant]
     Active Substance: LIOTHYRONINE SODIUM
  9. VERAPAMIL ER [Concomitant]
     Active Substance: VERAPAMIL HYDROCHLORIDE
  10. RALOXIFENE. [Concomitant]
     Active Substance: RALOXIFENE
  11. TURMERIC [Concomitant]
     Active Substance: HERBALS\TURMERIC
  12. ALIVE WOMEN^S DAILY 50+ [Concomitant]
  13. VALSARTAN 160/12.5MD [Suspect]
     Active Substance: VALSARTAN
     Indication: HYPERTENSION
     Dosage: ?          QUANTITY:90 TABLET(S);?
     Route: 048
     Dates: start: 20180506, end: 20180718
  14. GARLIC. [Concomitant]
     Active Substance: GARLIC

REACTIONS (3)
  - Muscle spasms [None]
  - Alopecia [None]
  - Asthenia [None]

NARRATIVE: CASE EVENT DATE: 20180506
